FAERS Safety Report 15919254 (Version 1)
Quarter: 2019Q1

REPORT INFORMATION
  Report Type: Spontaneous
  Country: US (occurrence: US)
  Receive Date: 20190205
  Receipt Date: 20190205
  Transmission Date: 20190417
  Serious: No
  Sender: FDA-Public Use
  Company Number: US-ROCHE-2077746

PATIENT
  Sex: Male

DRUGS (8)
  1. PAROXETINE. [Concomitant]
     Active Substance: PAROXETINE
  2. AMLODIPINE [Concomitant]
     Active Substance: AMLODIPINE BESYLATE
  3. LEVOTHYROXINE. [Concomitant]
     Active Substance: LEVOTHYROXINE
  4. XOLAIR [Suspect]
     Active Substance: OMALIZUMAB
     Indication: URTICARIA
     Route: 058
     Dates: start: 20180214
  5. MONTELUKAST [Concomitant]
     Active Substance: MONTELUKAST SODIUM
  6. RANITIDINE. [Concomitant]
     Active Substance: RANITIDINE
  7. CLONAZEPAM. [Concomitant]
     Active Substance: CLONAZEPAM
  8. PRAZOSIN. [Concomitant]
     Active Substance: PRAZOSIN

REACTIONS (5)
  - Tremor [Unknown]
  - Visual impairment [Unknown]
  - Fatigue [Unknown]
  - Dizziness [Unknown]
  - Asthenia [Unknown]
